FAERS Safety Report 5218881-0 (Version None)
Quarter: 2007Q1

REPORT INFORMATION
  Report Type: 
  Country: None (occurrence: None)
  Receive Date: 20070123
  Receipt Date: 20070108
  Transmission Date: 20070707
  Serious: Yes (Death)
  Sender: FDA-Public Use
  Company Number: 2007CT000025

PATIENT
  Age: 46 Year
  Sex: Female
  Weight: 59.9 kg

DRUGS (13)
  1. VENTAVIS [Suspect]
     Indication: PULMONARY HYPERTENSION
     Dosage: 5 UG; 5 TO 6X;/DA; INH
     Route: 055
     Dates: start: 20050415, end: 20061228
  2. CELLCEPT [Concomitant]
  3. PREDNISONE [Concomitant]
  4. ACETAMINOPHEN [Concomitant]
  5. KLONOPIN [Concomitant]
  6. DIPHENHYDRAMINE HCL [Concomitant]
  7. ROLAIDS [Concomitant]
  8. PROGRAF [Concomitant]
  9. SILDENAFIL CITRATE [Concomitant]
  10. ATROVENT [Concomitant]
  11. DIGITEK [Concomitant]
  12. LASIX [Concomitant]
  13. POTASSIUM CHLORIDE [Concomitant]

REACTIONS (9)
  - BRONCHITIS [None]
  - CARDIAC ARREST [None]
  - FLUSHING [None]
  - FOAMING AT MOUTH [None]
  - HEADACHE [None]
  - NASOPHARYNGITIS [None]
  - PAIN IN JAW [None]
  - PRURITUS [None]
  - VENTRICULAR FIBRILLATION [None]
